FAERS Safety Report 10267504 (Version 2)
Quarter: 2014Q2

REPORT INFORMATION
  Report Type: Spontaneous
  Country: JP (occurrence: JP)
  Receive Date: 20140630
  Receipt Date: 20140630
  Transmission Date: 20141212
  Serious: Yes (Hospitalization, Disabling)
  Sender: FDA-Public Use
  Company Number: JP-JNJFOC-20140215722

PATIENT
  Age: 81 Year
  Sex: Female
  Weight: 44 kg

DRUGS (7)
  1. XARELTO [Suspect]
     Indication: CEREBROVASCULAR ACCIDENT PROPHYLAXIS
     Route: 048
     Dates: start: 20130827, end: 20131023
  2. XARELTO [Suspect]
     Indication: ATRIAL FIBRILLATION
     Route: 048
     Dates: start: 20130827, end: 20131023
  3. THYRADIN [Concomitant]
     Route: 048
     Dates: start: 1989
  4. ACTONEL [Concomitant]
     Route: 048
     Dates: start: 2007
  5. D ALFA [Concomitant]
     Route: 048
     Dates: start: 2007
  6. VASOLAN [Concomitant]
     Route: 048
     Dates: start: 20130827
  7. NEXIUM [Concomitant]
     Route: 048
     Dates: start: 20130827

REACTIONS (2)
  - Cerebellar haemorrhage [Recovered/Resolved with Sequelae]
  - Altered state of consciousness [Unknown]
